FAERS Safety Report 5163151-2 (Version None)
Quarter: 2006Q4

REPORT INFORMATION
  Report Type: 
  Country: None (occurrence: None)
  Receive Date: 20061204
  Receipt Date: 20061121
  Transmission Date: 20070319
  Serious: Yes (Life-Threatening)
  Sender: FDA-Public Use
  Company Number: EMADSS2001005294

PATIENT
  Age: 94 Year
  Sex: Female

DRUGS (4)
  1. HALDOL [Suspect]
     Indication: PARANOIA
     Route: 048
     Dates: start: 20000601, end: 20010319
  2. SERESTA [Suspect]
     Indication: DRUG USE FOR UNKNOWN INDICATION
     Route: 048
  3. ATHYMIL [Suspect]
     Indication: DEPRESSION
     Route: 048
     Dates: end: 20010321
  4. FORLAX [Suspect]
     Indication: DRUG USE FOR UNKNOWN INDICATION
     Route: 048

REACTIONS (7)
  - AGRANULOCYTOSIS [None]
  - ASTHENIA [None]
  - LEUKOPENIA [None]
  - LUNG INFECTION [None]
  - LYMPHOPENIA [None]
  - MALAISE [None]
  - VIRAL INFECTION [None]
